FAERS Safety Report 9830529 (Version 1)
Quarter: 2014Q1

REPORT INFORMATION
  Report Type: Spontaneous
  Country: FR (occurrence: FR)
  Receive Date: 20140120
  Receipt Date: 20140120
  Transmission Date: 20141002
  Serious: Yes (Hospitalization, Disabling, Other)
  Sender: FDA-Public Use
  Company Number: FR-BRISTOL-MYERS SQUIBB COMPANY-19984830

PATIENT
  Age: 49 Year
  Sex: Female
  Weight: 72 kg

DRUGS (10)
  1. ORENCIA FOR INJ 250 MG/VIAL [Suspect]
     Indication: RHEUMATOID ARTHRITIS
     Dosage: RECENT INF:72
     Route: 042
     Dates: start: 200805, end: 20130929
  2. ALDALIX [Concomitant]
  3. CARDENSIEL [Concomitant]
     Dosage: MORNING
  4. ASPEGIC [Concomitant]
  5. INEXIUM [Concomitant]
  6. LASILIX [Concomitant]
  7. DIFFU-K [Concomitant]
  8. DOLIPRANE [Concomitant]
  9. IMOVANE [Concomitant]
  10. FORLAX [Concomitant]

REACTIONS (4)
  - Arthritis bacterial [Recovering/Resolving]
  - Bacteroides infection [Recovering/Resolving]
  - Bursitis infective [Recovering/Resolving]
  - Osteonecrosis [Recovering/Resolving]
